FAERS Safety Report 7024080-2 (Version None)
Quarter: 2010Q4

REPORT INFORMATION
  Report Type: 
  Country: None (occurrence: None)
  Receive Date: 20101001
  Receipt Date: 20100924
  Transmission Date: 20110411
  Serious: Yes (Other)
  Sender: FDA-Public Use
  Company Number: US-JNJFOC-20100908633

PATIENT
  Sex: Female
  Weight: 65.77 kg

DRUGS (2)
  1. SANDOZ FENTANYL TRANSDERMAL SYSTEM [Suspect]
     Indication: MUSCULOSKELETAL PAIN
     Route: 062
  2. UNKNOWN MEDICATION [Suspect]
     Indication: WITHDRAWAL SYNDROME
     Route: 060

REACTIONS (6)
  - COLD SWEAT [None]
  - GASTRIC ULCER [None]
  - HYPERHIDROSIS [None]
  - INSOMNIA [None]
  - THYROID DISORDER [None]
  - WEIGHT DECREASED [None]
